FAERS Safety Report 7770406-1 (Version None)
Quarter: 2011Q3

REPORT INFORMATION
  Report Type: 
  Country: None (occurrence: None)
  Receive Date: 20110922
  Receipt Date: 20110208
  Transmission Date: 20111222
  Serious: No
  Sender: FDA-Public Use
  Company Number: US-ASTRAZENECA-2011SE07812

PATIENT
  Age: 15166 Day
  Sex: Female

DRUGS (5)
  1. PRISTIQ [Concomitant]
     Indication: DEPRESSION
  2. SEROQUEL XR [Suspect]
     Route: 048
  3. DIAZEPAM [Concomitant]
  4. BYSTOLIC [Concomitant]
     Indication: HYPERTENSION
  5. PRAVASTATIN [Concomitant]
     Indication: HYPERCHOLESTEROLAEMIA

REACTIONS (3)
  - WEIGHT INCREASED [None]
  - INSOMNIA [None]
  - DRUG DOSE OMISSION [None]
